FAERS Safety Report 7565228-0 (Version None)
Quarter: 2011Q2

REPORT INFORMATION
  Report Type: 
  Country: None (occurrence: None)
  Receive Date: 20110622
  Receipt Date: 20110608
  Transmission Date: 20111010
  Serious: Yes (Hospitalization)
  Sender: FDA-Public Use
  Company Number: NL-GENENTECH-318803

PATIENT
  Sex: Male
  Weight: 108 kg

DRUGS (10)
  1. GRANULOCYTE COLONY STIMULATING FACTOR [Suspect]
     Indication: DIFFUSE LARGE B-CELL LYMPHOMA
     Dosage: 6 MG, UNK
     Dates: start: 20110419
  2. PREDNISONE [Suspect]
     Indication: DIFFUSE LARGE B-CELL LYMPHOMA
     Dosage: 25 MG, UNK
     Route: 048
     Dates: start: 20110103
  3. CYCLOPHOSPHAMIDE [Suspect]
     Indication: DIFFUSE LARGE B-CELL LYMPHOMA
     Dosage: 1682 MG, UNK
     Route: 042
     Dates: start: 20110103
  4. DOXORUBICIN HCL [Suspect]
     Dosage: 112 MG, UNK
     Dates: start: 20110418
  5. PREDNISONE [Suspect]
     Dosage: 100 MG, UNK
     Dates: start: 20110419
  6. DOXORUBICIN HCL [Suspect]
     Indication: DIFFUSE LARGE B-CELL LYMPHOMA
     Dosage: 112 MG, UNK
     Route: 042
     Dates: start: 20110403
  7. VINCRISTINE [Suspect]
     Indication: DIFFUSE LARGE B-CELL LYMPHOMA
     Dosage: 200 MG, UNK
     Route: 042
     Dates: start: 20110103
  8. CYCLOPHOSPHAMIDE [Suspect]
     Dosage: 1682 MG, UNK
     Route: 042
     Dates: start: 20110418
  9. RITUXIMAB [Suspect]
     Indication: DIFFUSE LARGE B-CELL LYMPHOMA
     Dosage: 750 MG, UNK
     Route: 042
     Dates: start: 20110103
  10. VINCRISTINE [Suspect]
     Dosage: 2 MG, UNK
     Route: 042
     Dates: start: 20110418

REACTIONS (3)
  - HYDRONEPHROSIS [None]
  - PYREXIA [None]
  - URETERIC OBSTRUCTION [None]
